FAERS Safety Report 5530949-8 (Version None)
Quarter: 2007Q4

REPORT INFORMATION
  Report Type: 
  Country: None (occurrence: None)
  Receive Date: 20071130
  Receipt Date: 20071119
  Transmission Date: 20080405
  Serious: Yes (Other)
  Sender: FDA-Public Use
  Company Number: US-PFIZER INC-2007092240

PATIENT
  Sex: Female
  Weight: 72.7 kg

DRUGS (4)
  1. NEURONTIN [Suspect]
     Indication: DIABETIC NEUROPATHY
     Route: 048
     Dates: start: 20070501, end: 20071101
  2. DIABETA [Concomitant]
     Indication: DIABETES MELLITUS
  3. LISINOPRIL [Concomitant]
  4. HYDROCHLOROTHIAZIDE [Concomitant]

REACTIONS (5)
  - ALOPECIA [None]
  - AMNESIA [None]
  - BLOOD CHOLESTEROL DECREASED [None]
  - HYPERHIDROSIS [None]
  - TOOTH DISORDER [None]
